FAERS Safety Report 21726177 (Version 1)
Quarter: 2022Q4

REPORT INFORMATION
  Report Type: Spontaneous
  Country: US (occurrence: US)
  Receive Date: 20221214
  Receipt Date: 20221214
  Transmission Date: 20230112
  Serious: No
  Sender: FDA-Public Use
  Company Number: US-NOVEN PHARMACEUTICALS, INC.-2022-NOV-US000719

PATIENT
  Sex: Female

DRUGS (2)
  1. MINIVELLE [Suspect]
     Active Substance: ESTRADIOL
     Indication: Alopecia
     Dosage: UNKNOWN
     Route: 062
  2. MINIVELLE [Suspect]
     Active Substance: ESTRADIOL
     Indication: Off label use

REACTIONS (3)
  - Therapeutic product effective for unapproved indication [Recovered/Resolved]
  - Off label use [Recovered/Resolved]
  - No adverse event [Unknown]
